FAERS Safety Report 14983249 (Version 1)
Quarter: 2018Q3

REPORT INFORMATION
  Report Type: Spontaneous
  Country: US (occurrence: US)
  Receive Date: 20180607
  Receipt Date: 20180607
  Transmission Date: 20181010
  Serious: No
  Sender: FDA-Public Use
  Company Number: US-JNJFOC-20180533954

PATIENT
  Sex: Female

DRUGS (3)
  1. TYLENOL EXTRA STRENGTH [Suspect]
     Active Substance: ACETAMINOPHEN
     Indication: PRODUCT USED FOR UNKNOWN INDICATION
     Dosage: 1 TYLENOL 8 HOUR AFTER EIGHT HOURS 1 TYLENOL ES RRG THEN BACK TO 1 TYLENOL 8 HOUR AFTER 6 HOURS
     Route: 065
  2. TYLENOL 8 HR ARTHRITIS PAIN [Suspect]
     Active Substance: ACETAMINOPHEN
     Route: 065
  3. TYLENOL 8 HR ARTHRITIS PAIN [Suspect]
     Active Substance: ACETAMINOPHEN
     Indication: PRODUCT USED FOR UNKNOWN INDICATION
     Dosage: 1 TYLENOL 8 HOUR AFTER EIGHT HOURS 1 TYLENOL ES RRG THEN BACK TO 1 TYLENOL 8 HOUR AFTER 6 HOURS
     Route: 065

REACTIONS (3)
  - Drug administration error [Unknown]
  - Incorrect dose administered [Unknown]
  - Inappropriate schedule of drug administration [Unknown]
